FAERS Safety Report 4828264-0 (Version None)
Quarter: 2005Q4

REPORT INFORMATION
  Report Type: 
  Country: None (occurrence: None)
  Receive Date: 20051114
  Receipt Date: 20051114
  Transmission Date: 20060501
  Serious: Yes (Other)
  Sender: FDA-Public Use
  Company Number: None

PATIENT
  Age: 57 Year
  Sex: Male
  Weight: 169.5 kg

DRUGS (3)
  1. NIACIN [Suspect]
     Indication: HYPERLIPIDAEMIA
     Dosage: 1000 MG QD PO QHS
     Dates: start: 20040726
  2. NIACIN [Suspect]
     Indication: HYPERLIPIDAEMIA
     Dosage: 1000 MG QD PO QHS
     Dates: start: 20050830
  3. ... [Concomitant]

REACTIONS (3)
  - GOUT [None]
  - PANCREATITIS ACUTE [None]
  - RENAL IMPAIRMENT [None]
